FAERS Safety Report 23705323 (Version 1)
Quarter: 2024Q2

REPORT INFORMATION
  Report Type: Report from Study
  Country: AU (occurrence: AU)
  Receive Date: 20240404
  Receipt Date: 20240404
  Transmission Date: 20240716
  Serious: Yes (Other)
  Sender: FDA-Public Use
  Company Number: AU-CELLTRION INC.-2024AU008046

PATIENT

DRUGS (1)
  1. INFLIXIMAB [Suspect]
     Active Substance: INFLIXIMAB
     Indication: Colitis ulcerative
     Dosage: 120 MG EVERY TWO WEEKS/FORTNIGHT
     Route: 058
     Dates: start: 20231010

REACTIONS (2)
  - Bursitis [Recovered/Resolved]
  - Myalgia [Recovered/Resolved]
